FAERS Safety Report 19458232 (Version 2)
Quarter: 2021Q3

REPORT INFORMATION
  Report Type: Report from Study
  Country: CA (occurrence: CA)
  Receive Date: 20210624
  Receipt Date: 20210925
  Transmission Date: 20211014
  Serious: Yes (Hospitalization, Other)
  Sender: FDA-Public Use
  Company Number: NVSC2021CA112221

PATIENT
  Sex: Male

DRUGS (4)
  1. REVOLADE [Suspect]
     Active Substance: ELTROMBOPAG OLAMINE
     Dosage: 25 MG, TIW (3 TIMES A WEEK, EVERY MONDAY, WEDNESDAY, FRIDAY)
     Route: 048
  2. REVOLADE [Suspect]
     Active Substance: ELTROMBOPAG OLAMINE
     Indication: IMMUNE THROMBOCYTOPENIA
     Dosage: 50 MG, QOD
     Route: 048
  3. REVOLADE [Suspect]
     Active Substance: ELTROMBOPAG OLAMINE
     Dosage: 25 MG, QD
     Route: 048
  4. PREDNISONE. [Concomitant]
     Active Substance: PREDNISONE
     Indication: PRODUCT USED FOR UNKNOWN INDICATION
     Dosage: UNK
     Route: 065
     Dates: end: 20210512

REACTIONS (12)
  - Blood urine present [Unknown]
  - Pain in extremity [Unknown]
  - Platelet count increased [Recovering/Resolving]
  - Atrial fibrillation [Unknown]
  - Mobility decreased [Unknown]
  - Vision blurred [Recovering/Resolving]
  - Fatigue [Unknown]
  - Depression [Unknown]
  - Peripheral swelling [Unknown]
  - Aggression [Recovered/Resolved]
  - Gait inability [Unknown]
  - General physical health deterioration [Recovering/Resolving]
